FAERS Safety Report 6815336-4 (Version None)
Quarter: 2010Q2

REPORT INFORMATION
  Report Type: 
  Country: None (occurrence: None)
  Receive Date: 20100629
  Receipt Date: 20100625
  Transmission Date: 20101027
  Serious: Yes (Death, Hospitalization, Other)
  Sender: FDA-Public Use
  Company Number: 2010SP018404

PATIENT
  Age: 67 Year
  Sex: Male
  Weight: 76 kg

DRUGS (3)
  1. TEMODAL [Suspect]
     Indication: GLIOBLASTOMA MULTIFORME
     Dosage: 75 MG/M2;QD;PO
     Route: 048
     Dates: start: 20091201, end: 20100119
  2. DEXAMETHASONE [Concomitant]
  3. PANTOZOL [Concomitant]

REACTIONS (8)
  - ABDOMINAL PAIN [None]
  - ACUTE HEPATIC FAILURE [None]
  - ASTHENIA [None]
  - COAGULOPATHY [None]
  - DYSPNOEA EXERTIONAL [None]
  - LEUKOPENIA [None]
  - RALES [None]
  - SOMNOLENCE [None]
